FAERS Safety Report 14223555 (Version 1)
Quarter: 2017Q4

REPORT INFORMATION
  Report Type: Report from Study
  Country: MX (occurrence: MX)
  Receive Date: 20171124
  Receipt Date: 20171124
  Transmission Date: 20180321
  Serious: Yes (Other)
  Sender: FDA-Public Use
  Company Number: PHHY2017MX172199

PATIENT
  Sex: Female

DRUGS (2)
  1. NOVOTIRAL [Concomitant]
     Active Substance: LEVOTHYROXINE
     Indication: PRODUCT USED FOR UNKNOWN INDICATION
     Route: 065
  2. EXFORGE HCT [Suspect]
     Active Substance: AMLODIPINE BESYLATE\HYDROCHLOROTHIAZIDE\VALSARTAN
     Indication: BLOOD PRESSURE INCREASED
     Dosage: 1 DF (AMLODIPINE 10 MG, HYDROCHLOROTHIAZIDE 25 MG, VALSARTAN 320 MG), QD
     Route: 065

REACTIONS (3)
  - Memory impairment [Unknown]
  - Fall [Unknown]
  - Hand fracture [Unknown]
